FAERS Safety Report 10406933 (Version 2)
Quarter: 2014Q3

REPORT INFORMATION
  Report Type: Spontaneous
  Country: MX (occurrence: MX)
  Receive Date: 20140825
  Receipt Date: 20140825
  Transmission Date: 20150326
  Serious: Yes (Other)
  Sender: FDA-Public Use
  Company Number: MX-BAYER-2014-113718

PATIENT
  Sex: Male

DRUGS (1)
  1. AVELOX [Suspect]
     Active Substance: MOXIFLOXACIN HYDROCHLORIDE
     Indication: SKIN INFECTION
     Dosage: UNK
     Dates: end: 2014

REACTIONS (3)
  - Myositis [Recovered/Resolved]
  - Pain in extremity [Recovered/Resolved]
  - Muscle rupture [None]

NARRATIVE: CASE EVENT DATE: 201407
